FAERS Safety Report 11483449 (Version 1)
Quarter: 2015Q3

REPORT INFORMATION
  Report Type: Spontaneous
  Country: US (occurrence: US)
  Receive Date: 20150903
  Receipt Date: 20150903
  Transmission Date: 20151125
  Serious: Yes (Other)
  Sender: FDA-Public Use
  Company Number: US-ELI_LILLY_AND_COMPANY-US201207000738

PATIENT
  Age: 25 Year
  Sex: Female

DRUGS (3)
  1. CYMBALTA [Suspect]
     Active Substance: DULOXETINE HYDROCHLORIDE
     Dosage: 30 MG
  2. LAMICTAL [Concomitant]
     Active Substance: LAMOTRIGINE
  3. CYMBALTA [Suspect]
     Active Substance: DULOXETINE HYDROCHLORIDE
     Indication: DEPRESSION
     Dosage: 60 MG, QD
     Route: 065

REACTIONS (7)
  - Suicidal ideation [Recovered/Resolved]
  - Asocial behaviour [Recovered/Resolved]
  - Psychomotor hyperactivity [Unknown]
  - Intentional product misuse [Unknown]
  - Anger [Recovered/Resolved]
  - Drug withdrawal syndrome [Recovered/Resolved]
  - Abnormal behaviour [Unknown]
